FAERS Safety Report 4444352-5 (Version None)
Quarter: 2004Q3

REPORT INFORMATION
  Report Type: 
  Country: None (occurrence: None)
  Receive Date: 20040730
  Receipt Date: 20040203
  Transmission Date: 20050211
  Serious: No
  Sender: FDA-Public Use
  Company Number: 04P-163-0249439-00

PATIENT
  Age: 12 Year
  Sex: Male
  Weight: 53 kg

DRUGS (5)
  1. ULTANE [Suspect]
     Indication: ANAESTHESIA
     Dosage: 4%, ONCE, INHALATION
     Route: 055
     Dates: start: 20040203, end: 20040203
  2. FENTANYL [Concomitant]
  3. MIDAZOLAM [Concomitant]
  4. PROPOFOL [Concomitant]
  5. SALBUTAMOL [Concomitant]

REACTIONS (1)
  - PETIT MAL EPILEPSY [None]
